FAERS Safety Report 15823866 (Version 1)
Quarter: 2019Q1

REPORT INFORMATION
  Report Type: Spontaneous
  Country: JP (occurrence: JP)
  Receive Date: 20190114
  Receipt Date: 20190114
  Transmission Date: 20190417
  Serious: Yes (Other)
  Sender: FDA-Public Use
  Company Number: JP-ELI_LILLY_AND_COMPANY-JP201901005186

PATIENT
  Age: 65 Year
  Sex: Female

DRUGS (5)
  1. ERBITUX [Suspect]
     Active Substance: CETUXIMAB
     Indication: COLON CANCER
     Dosage: UNK, UNKNOWN
     Route: 041
     Dates: start: 201812
  2. OXALIPLATIN. [Concomitant]
     Active Substance: OXALIPLATIN
     Indication: COLON CANCER
     Dosage: UNK
     Dates: start: 201812
  3. GIMERACIL [Concomitant]
     Active Substance: GIMERACIL
     Indication: COLON CANCER
     Dosage: UNK
     Dates: start: 201812
  4. OTERACIL [Concomitant]
     Active Substance: OTERACIL
     Indication: COLON CANCER
     Dosage: UNK
     Dates: start: 201812
  5. TEGAFUR [Concomitant]
     Active Substance: TEGAFUR
     Indication: COLON CANCER
     Dosage: UNK
     Dates: start: 201812

REACTIONS (1)
  - Depressive symptom [Unknown]

NARRATIVE: CASE EVENT DATE: 201812
